FAERS Safety Report 15440199 (Version 2)
Quarter: 2019Q1

REPORT INFORMATION
  Report Type: Spontaneous
  Country: IT (occurrence: IT)
  Receive Date: 20180928
  Receipt Date: 20190206
  Transmission Date: 20190417
  Serious: Yes (Other)
  Sender: FDA-Public Use
  Company Number: IT-MYLANLABS-2018M1070234

PATIENT
  Age: 62 Year
  Sex: Male

DRUGS (1)
  1. IMATINIB. [Suspect]
     Active Substance: IMATINIB MESYLATE
     Indication: CHRONIC MYELOID LEUKAEMIA
     Dosage: 400 MILLIGRAM, QD
     Route: 065

REACTIONS (3)
  - Chronic myeloid leukaemia [Unknown]
  - Drug ineffective [Unknown]
  - Malignant neoplasm progression [Unknown]
